FAERS Safety Report 5078773-7 (Version None)
Quarter: 2006Q3

REPORT INFORMATION
  Report Type: 
  Country: None (occurrence: None)
  Receive Date: 20060809
  Receipt Date: 20060731
  Transmission Date: 20061208
  Serious: Yes (Hospitalization, Other)
  Sender: FDA-Public Use
  Company Number: 200612313BWH

PATIENT
  Age: 54 Year
  Sex: Male
  Weight: 58.9676 kg

DRUGS (4)
  1. SORAFENIB [Suspect]
     Indication: GASTROINTESTINAL NEOPLASM
     Dosage: SEE IMAGE
     Route: 048
     Dates: start: 20060101
  2. SORAFENIB [Suspect]
     Indication: GASTROINTESTINAL NEOPLASM
     Dosage: SEE IMAGE
     Route: 048
     Dates: start: 20060201
  3. DURAGESIC-100 [Concomitant]
  4. LOVENOX [Concomitant]

REACTIONS (9)
  - ABSCESS [None]
  - DECUBITUS ULCER [None]
  - DEEP VEIN THROMBOSIS [None]
  - DISEASE PROGRESSION [None]
  - DRUG DOSE OMISSION [None]
  - HYPOTRICHOSIS [None]
  - NAUSEA [None]
  - THROMBOSIS [None]
  - VOMITING [None]
